FAERS Safety Report 5848673-0 (Version None)
Quarter: 2008Q3

REPORT INFORMATION
  Report Type: 
  Country: None (occurrence: None)
  Receive Date: 20080814
  Receipt Date: 20080804
  Transmission Date: 20090109
  Serious: Yes (Death, Other)
  Sender: FDA-Public Use
  Company Number: 15348

PATIENT
  Age: 54 Year
  Sex: Female
  Weight: 56.6996 kg

DRUGS (4)
  1. MORPHINE SULFATE [Suspect]
     Indication: ARTHRITIS
     Dosage: 60 MG TID ORALLY
     Route: 048
     Dates: start: 19980101, end: 20070807
  2. MORPHINE SULFATE [Suspect]
     Indication: FIBROMYALGIA
     Dosage: 60 MG TID ORALLY
     Route: 048
     Dates: start: 19980101, end: 20070807
  3. VALIUM [Concomitant]
  4. SEVERAL OTHER MEDICATIONS THAT ARE UNKNOWN TO THE REPORTER [Concomitant]

REACTIONS (2)
  - PHARMACEUTICAL PRODUCT COMPLAINT [None]
  - PULSE ABSENT [None]
